FAERS Safety Report 15515248 (Version 2)
Quarter: 2019Q2

REPORT INFORMATION
  Report Type: Spontaneous
  Country: US (occurrence: US)
  Receive Date: 20181017
  Receipt Date: 20190423
  Transmission Date: 20190711
  Serious: No
  Sender: FDA-Public Use
  Company Number: US-ASTRAZENECA-2018SF32028

PATIENT
  Sex: Female

DRUGS (2)
  1. RHINOCORT [Suspect]
     Active Substance: BUDESONIDE
     Route: 045
  2. BUDESONIDE. [Suspect]
     Active Substance: BUDESONIDE
     Route: 055

REACTIONS (1)
  - Dyspnoea [Unknown]
